FAERS Safety Report 18735724 (Version 1)
Quarter: 2021Q1

REPORT INFORMATION
  Report Type: Spontaneous
  Country: DK (occurrence: DK)
  Receive Date: 20210113
  Receipt Date: 20210113
  Transmission Date: 20210419
  Serious: Yes (Other)
  Sender: FDA-Public Use
  Company Number: DK-MYLANLABS-2021M1001230

PATIENT
  Sex: Male

DRUGS (1)
  1. MEDANEF [Suspect]
     Active Substance: METHYLPHENIDATE
     Indication: ATTENTION DEFICIT HYPERACTIVITY DISORDER
     Dosage: 10 MILLIGRAM, TID
     Dates: start: 202012, end: 202101

REACTIONS (3)
  - Drug ineffective [Unknown]
  - Depression [Unknown]
  - Suicidal ideation [Unknown]
